FAERS Safety Report 5665069-5 (Version None)
Quarter: 2008Q1

REPORT INFORMATION
  Report Type: 
  Country: None (occurrence: None)
  Receive Date: 20080314
  Receipt Date: 20080221
  Transmission Date: 20080703
  Serious: No
  Sender: FDA-Public Use
  Company Number: US-BOEHRINGER INGELHEIM GMBH, GERMANY-2008-BP-02634BP

PATIENT
  Age: 26 Year
  Sex: Female

DRUGS (1)
  1. MIRAPEX [Suspect]
     Route: 048
     Dates: start: 20080110, end: 20080114

REACTIONS (2)
  - PHARYNGEAL OEDEMA [None]
  - THROAT IRRITATION [None]
